FAERS Safety Report 10474538 (Version 2)
Quarter: 2014Q3

REPORT INFORMATION
  Report Type: Report from Study
  Country: US (occurrence: US)
  Receive Date: 20140924
  Receipt Date: 20140924
  Transmission Date: 20150326
  Serious: Yes (Other)
  Sender: FDA-Public Use
  Company Number: US-ALEXION PHARMACEUTICALS INC-A200700289

PATIENT
  Sex: Female

DRUGS (3)
  1. SOLIRIS [Suspect]
     Active Substance: ECULIZUMAB
     Dosage: UNK, Q 21 DAYS
     Route: 042
  2. SOLIRIS [Suspect]
     Active Substance: ECULIZUMAB
     Indication: PAROXYSMAL NOCTURNAL HAEMOGLOBINURIA
     Dosage: UNK
     Route: 042
  3. CYCLOSPORIN [Concomitant]
     Active Substance: CYCLOSPORINE
     Indication: APLASTIC ANAEMIA
     Dosage: UNK

REACTIONS (27)
  - Body temperature increased [Recovered/Resolved]
  - Anxiety [Unknown]
  - Cough [Not Recovered/Not Resolved]
  - Haemolysis [Unknown]
  - Chills [Unknown]
  - Platelet count decreased [Unknown]
  - Chest discomfort [Recovered/Resolved]
  - Anaemia [Unknown]
  - Aplastic anaemia [Unknown]
  - Transfusion [Unknown]
  - Pain [Unknown]
  - Headache [Unknown]
  - Palpitations [Recovered/Resolved]
  - Haemoglobin decreased [Unknown]
  - Biopsy bone marrow [Unknown]
  - Nausea [Unknown]
  - Neutrophil count decreased [Recovering/Resolving]
  - Hypopnoea [Recovered/Resolved]
  - Pharyngitis [Unknown]
  - Back pain [Unknown]
  - Injection site swelling [Unknown]
  - Contusion [Recovered/Resolved]
  - Sluggishness [Unknown]
  - Fatigue [Unknown]
  - Inappropriate schedule of drug administration [Unknown]
  - Dyspnoea [Unknown]
  - Blood lactate dehydrogenase increased [Recovering/Resolving]

NARRATIVE: CASE EVENT DATE: 20080326
